FAERS Safety Report 9287953 (Version 1)
Quarter: 2013Q2

REPORT INFORMATION
  Report Type: Spontaneous
  Country: BR (occurrence: BR)
  Receive Date: 20130514
  Receipt Date: 20130514
  Transmission Date: 20140414
  Serious: Yes (Other)
  Sender: FDA-Public Use
  Company Number: BR-PFIZER INC-2013148010

PATIENT
  Age: 72 Year
  Sex: Female
  Weight: 59 kg

DRUGS (5)
  1. TECTA [Suspect]
     Indication: EROSIVE DUODENITIS
     Dosage: 1 DF, 1X/DAY
     Route: 048
     Dates: start: 20130423
  2. HYDROCHLOROTHIAZIDE [Concomitant]
     Indication: HYPERTENSION
     Dosage: 1 DF, UNK
     Route: 048
     Dates: start: 2012
  3. SELOZOK [Concomitant]
     Indication: HYPERTENSION
     Dosage: 1 DF, UNK
     Route: 048
     Dates: start: 2012
  4. METADOXIL [Concomitant]
     Dosage: 2 DF, UNK
     Route: 048
     Dates: start: 2013
  5. TRIMEBUTINE MALEATE [Concomitant]
     Dosage: 2 DF, UNK
     Route: 048
     Dates: start: 201304

REACTIONS (5)
  - Off label use [Unknown]
  - Abdominal distension [Not Recovered/Not Resolved]
  - Depression [Not Recovered/Not Resolved]
  - Increased appetite [Not Recovered/Not Resolved]
  - Somnolence [Recovering/Resolving]
